FAERS Safety Report 15731140 (Version 1)
Quarter: 2018Q4

REPORT INFORMATION
  Report Type: Report from Study
  Country: US (occurrence: US)
  Receive Date: 20181217
  Receipt Date: 20181217
  Transmission Date: 20190205
  Serious: Yes (Hospitalization, Other)
  Sender: FDA-Public Use
  Company Number: US-SA-2018SA008165

PATIENT
  Age: 27 Year
  Sex: Female

DRUGS (3)
  1. ALEMTUZUMAB [Suspect]
     Active Substance: ALEMTUZUMAB
     Indication: MULTIPLE SCLEROSIS
     Dosage: 12 MG,QD
     Route: 041
     Dates: start: 20171211, end: 20171215
  2. DIPHENHYDRAMINE HYDROCHLORIDE. [Suspect]
     Active Substance: DIPHENHYDRAMINE HYDROCHLORIDE
     Dosage: UNK UNK,UNK
     Route: 042
     Dates: start: 201712
  3. PREDNISONE. [Suspect]
     Active Substance: PREDNISONE
     Dosage: 100 MG
     Route: 065

REACTIONS (20)
  - Dizziness [Recovered/Resolved]
  - Tachycardia [Unknown]
  - Rhinorrhoea [Recovering/Resolving]
  - Flushing [Recovered/Resolved]
  - Insomnia [Not Recovered/Not Resolved]
  - Haemolytic anaemia [Not Recovered/Not Resolved]
  - Vision blurred [Recovered/Resolved]
  - Nasopharyngitis [Unknown]
  - Tongue discolouration [Recovered/Resolved]
  - Pruritus [Recovered/Resolved]
  - Dyspnoea [Unknown]
  - Haematocrit decreased [Not Recovered/Not Resolved]
  - Haemoglobin decreased [Not Recovered/Not Resolved]
  - Nervousness [Recovered/Resolved]
  - Unevaluable event [Recovered/Resolved]
  - Loss of consciousness [Unknown]
  - Melanocytic naevus [Not Recovered/Not Resolved]
  - Cough [Recovered/Resolved]
  - Somnolence [Recovered/Resolved]
  - Fatigue [Unknown]

NARRATIVE: CASE EVENT DATE: 201712
